FAERS Safety Report 13724961 (Version 1)
Quarter: 2017Q3

REPORT INFORMATION
  Report Type: Spontaneous
  Country: US (occurrence: US)
  Receive Date: 20170706
  Receipt Date: 20170706
  Transmission Date: 20171127
  Serious: No
  Sender: FDA-Public Use
  Company Number: US-PFIZER INC-2017285992

PATIENT
  Sex: Female

DRUGS (2)
  1. CELEBREX [Suspect]
     Active Substance: CELECOXIB
     Dosage: 200 MG, TWICE A DAY
  2. XELJANZ XR [Suspect]
     Active Substance: TOFACITINIB CITRATE
     Dosage: 11 MG, UNK

REACTIONS (18)
  - Crepitations [Unknown]
  - Anxiety [Unknown]
  - Mean cell volume increased [Unknown]
  - Alanine aminotransferase increased [Unknown]
  - Blood cholesterol increased [Unknown]
  - Musculoskeletal stiffness [Unknown]
  - Arthralgia [Unknown]
  - Depressed mood [Unknown]
  - Blood glucose increased [Unknown]
  - Joint swelling [Unknown]
  - White blood cell count increased [Unknown]
  - Pain in extremity [Unknown]
  - Synovitis [Unknown]
  - Neutrophil count increased [Unknown]
  - Fatigue [Unknown]
  - Blood triglycerides increased [Unknown]
  - Mean cell haemoglobin increased [Unknown]
  - Tenderness [Unknown]
